FAERS Safety Report 7617025-5 (Version None)
Quarter: 2011Q3

REPORT INFORMATION
  Report Type: 
  Country: None (occurrence: None)
  Receive Date: 20110718
  Receipt Date: 20090416
  Transmission Date: 20111222
  Serious: Yes (Hospitalization, Other)
  Sender: FDA-Public Use
  Company Number: US-BAYER-200918350NA

PATIENT
  Age: 62 Year
  Sex: Female
  Weight: 113 kg

DRUGS (11)
  1. PAPAVERINE [Concomitant]
     Route: 042
  2. VERSED [Concomitant]
     Route: 042
  3. TRASYLOL [Suspect]
     Indication: CORONARY ARTERY BYPASS
     Dosage: 1 ML TEST DOSE
     Route: 042
     Dates: start: 20051021, end: 20051021
  4. TRASYLOL [Suspect]
     Dosage: 50CC/HR
     Route: 042
     Dates: start: 20051021, end: 20051021
  5. TRASYLOL [Suspect]
     Dosage: 200ML
     Route: 042
     Dates: start: 20051021, end: 20051021
  6. ZOCOR [Concomitant]
     Dosage: 40 MG, ONCE
     Route: 048
  7. INSULIN 2 [Concomitant]
     Route: 058
  8. CEFUROXIME [Concomitant]
     Dosage: 3 G, UNK
     Route: 042
     Dates: start: 20051021
  9. HEPARIN [Concomitant]
  10. AMIODARONE HCL [Concomitant]
     Route: 048
  11. NATRECOR [Concomitant]
     Route: 042

REACTIONS (5)
  - INJURY [None]
  - UNEVALUABLE EVENT [None]
  - RENAL FAILURE ACUTE [None]
  - RENAL FAILURE [None]
  - PAIN [None]
